FAERS Safety Report 9282961 (Version 3)
Quarter: 2013Q3

REPORT INFORMATION
  Report Type: Report from Study
  Country: DE (occurrence: DE)
  Receive Date: 20130510
  Receipt Date: 20130906
  Transmission Date: 20140515
  Serious: Yes (Other)
  Sender: FDA-Public Use
  Company Number: DE-BAYER-2013-057467

PATIENT
  Sex: Female

DRUGS (1)
  1. BETAFERON [Suspect]
     Indication: MULTIPLE SCLEROSIS

REACTIONS (6)
  - Circulatory collapse [None]
  - Dizziness [None]
  - Syncope [None]
  - Hyperhidrosis [None]
  - Influenza [None]
  - Malaise [Recovered/Resolved]
